FAERS Safety Report 5798224-4 (Version None)
Quarter: 2008Q3

REPORT INFORMATION
  Report Type: 
  Country: None (occurrence: None)
  Receive Date: 20080702
  Receipt Date: 20080630
  Transmission Date: 20090109
  Serious: Yes (Death)
  Sender: FDA-Public Use
  Company Number: B0527253A

PATIENT
  Sex: Male

DRUGS (7)
  1. VENTOLIN [Suspect]
     Indication: DRUG USE FOR UNKNOWN INDICATION
     Route: 055
     Dates: start: 20040101, end: 20070101
  2. TEGRETOL [Concomitant]
  3. VALIUM [Concomitant]
  4. BOTOX [Concomitant]
  5. NOOTROPIL [Concomitant]
  6. ALPHA BLOCKER [Concomitant]
     Dates: start: 20050101, end: 20050101
  7. ALPHA BLOCKER [Concomitant]
     Dates: start: 20050101, end: 20050101

REACTIONS (2)
  - MULTI-ORGAN FAILURE [None]
  - MYOCLONUS [None]
